FAERS Safety Report 5393827-3 (Version None)
Quarter: 2007Q3

REPORT INFORMATION
  Report Type: 
  Country: None (occurrence: None)
  Receive Date: 20070719
  Receipt Date: 20070719
  Transmission Date: 20080115
  Serious: Yes (Hospitalization)
  Sender: FDA-Public Use
  Company Number: None

PATIENT
  Age: 49 Year
  Sex: Female
  Weight: 117.9352 kg

DRUGS (2)
  1. GEODON [Suspect]
     Indication: BIPOLAR DISORDER
     Dosage: 60 MG QHS PO
     Route: 048
  2. LISINOPRIL [Concomitant]

REACTIONS (7)
  - COMA [None]
  - DEHYDRATION [None]
  - DRUG TOXICITY [None]
  - HEPATIC ENCEPHALOPATHY [None]
  - LONG QT SYNDROME [None]
  - RHABDOMYOLYSIS [None]
  - TORSADE DE POINTES [None]
